FAERS Safety Report 24652978 (Version 2)
Quarter: 2024Q4

REPORT INFORMATION
  Report Type: Spontaneous
  Country: IN (occurrence: IN)
  Receive Date: 20241122
  Receipt Date: 20241126
  Transmission Date: 20250115
  Serious: Yes (Death, Life-Threatening)
  Sender: ROCHE
  Company Number: IN-ROCHE-10000114752

PATIENT
  Age: 74 Year
  Sex: Female

DRUGS (1)
  1. POLIVY [Suspect]
     Active Substance: POLATUZUMAB VEDOTIN-PIIQ
     Indication: Diffuse large B-cell lymphoma refractory
     Route: 042
     Dates: start: 20241022

REACTIONS (4)
  - Critical illness [Unknown]
  - Off label use [Unknown]
  - Off label use [Unknown]
  - Neoplasm malignant [Fatal]
